FAERS Safety Report 14339009 (Version 1)
Quarter: 2017Q4

REPORT INFORMATION
  Report Type: Spontaneous
  Country: US (occurrence: US)
  Receive Date: 20171230
  Receipt Date: 20171230
  Transmission Date: 20180321
  Serious: No
  Sender: FDA-Public Use
  Company Number: US-BIOGEN-2017BI00501349

PATIENT
  Sex: Female

DRUGS (1)
  1. TYSABRI [Suspect]
     Active Substance: NATALIZUMAB
     Indication: MULTIPLE SCLEROSIS
     Route: 065
     Dates: start: 20150505

REACTIONS (6)
  - Platelet count decreased [Unknown]
  - Tongue injury [Unknown]
  - Malaise [Unknown]
  - Anxiety [Unknown]
  - Speech disorder [Unknown]
  - Multiple sclerosis [Unknown]
